FAERS Safety Report 18620293 (Version 2)
Quarter: 2021Q1

REPORT INFORMATION
  Report Type: Other
  Country: IT (occurrence: IT)
  Receive Date: 20201215
  Receipt Date: 20210201
  Transmission Date: 20210419
  Serious: Yes (Hospitalization, Other)
  Sender: FDA-Public Use
  Company Number: IT-SERVIER-S20012318

PATIENT

DRUGS (11)
  1. TN UNSPECIFIED [LERCANIDIPINE] [Concomitant]
     Active Substance: LERCANIDIPINE
     Indication: PRODUCT USED FOR UNKNOWN INDICATION
     Dosage: UNK
     Route: 065
     Dates: start: 2017
  2. TN UNSPECIFIED [TEICOPLANIN] [Concomitant]
     Active Substance: TEICOPLANIN
     Indication: PRODUCT USED FOR UNKNOWN INDICATION
     Dosage: 400 MG, BID
     Route: 042
     Dates: start: 20200105, end: 20200121
  3. TN UNSPECFIED [VINCRISTINE SULFATE] [Concomitant]
     Active Substance: VINCRISTINE SULFATE
     Indication: CHEMOTHERAPY
     Dosage: 2 MG
     Route: 042
     Dates: start: 20200117, end: 20200117
  4. TN UNSPECIFIED [CASPOFUNGIN ACETATE] [Concomitant]
     Active Substance: CASPOFUNGIN ACETATE
     Indication: PRODUCT USED FOR UNKNOWN INDICATION
     Dosage: 50 MG, QD
     Route: 042
     Dates: start: 20200107, end: 20200112
  5. TN UNSPECIFIED [DOXAZOSIN MESILATE] [Concomitant]
     Active Substance: DOXAZOSIN MESYLATE
     Indication: PRODUCT USED FOR UNKNOWN INDICATION
     Dosage: UNK
     Route: 065
     Dates: start: 2017
  6. TN UNSPECIFIED [RAMIPRIL] [Concomitant]
     Active Substance: RAMIPRIL
     Indication: PRODUCT USED FOR UNKNOWN INDICATION
     Dosage: UNK
     Route: 065
     Dates: start: 2017
  7. TN UNSPECIFIED [MEROPENEM TRIHYDRATE] [Concomitant]
     Active Substance: MEROPENEM
     Indication: PRODUCT USED FOR UNKNOWN INDICATION
     Dosage: 2 G, TID
     Route: 042
     Dates: start: 20200109, end: 20200130
  8. PEGASPARGASE [Suspect]
     Active Substance: PEGASPARGASE
     Indication: ACUTE LYMPHOCYTIC LEUKAEMIA
     Dosage: 4000 IU
     Route: 042
     Dates: start: 20200105
  9. TN UNSPECIFIED [ATORVASTATIN CALCIUM] [Concomitant]
     Active Substance: ATORVASTATIN CALCIUM
     Indication: PRODUCT USED FOR UNKNOWN INDICATION
     Dosage: UNK
     Route: 065
     Dates: start: 2017
  10. TN UNSPECIFIED [AMIKACIN SULFATE] [Concomitant]
     Active Substance: AMIKACIN SULFATE
     Indication: PRODUCT USED FOR UNKNOWN INDICATION
     Dosage: 1 G, QD
     Route: 042
     Dates: start: 20200106, end: 20200121
  11. TN UNSPECIFIED [NEBIVOLOL] [Concomitant]
     Active Substance: NEBIVOLOL
     Indication: PRODUCT USED FOR UNKNOWN INDICATION
     Dosage: UNK
     Route: 065
     Dates: start: 2017

REACTIONS (3)
  - Hepatotoxicity [Recovered/Resolved]
  - Xanthochromia [Recovered/Resolved]
  - Blood bilirubin increased [Recovering/Resolving]

NARRATIVE: CASE EVENT DATE: 2020
